FAERS Safety Report 9149197 (Version 4)
Quarter: 2014Q3

REPORT INFORMATION
  Report Type: Spontaneous
  Country: US (occurrence: US)
  Receive Date: 20130308
  Receipt Date: 20140814
  Transmission Date: 20150326
  Serious: Yes (Hospitalization, Other)
  Sender: FDA-Public Use
  Company Number: US-009507513-1303USA000505

PATIENT
  Sex: Female
  Weight: 113.38 kg

DRUGS (1)
  1. NUVARING [Suspect]
     Active Substance: ETHINYL ESTRADIOL\ETONOGESTREL
     Indication: CONTRACEPTION
     Dosage: UNK
     Route: 067
     Dates: start: 20080629, end: 201012

REACTIONS (20)
  - Deep vein thrombosis [Unknown]
  - Insomnia [Unknown]
  - Gastrooesophageal reflux disease [Unknown]
  - Asthma [Unknown]
  - Menorrhagia [Unknown]
  - Dysfunctional uterine bleeding [Unknown]
  - Mesenteric vein thrombosis [Recovering/Resolving]
  - Hiatus hernia [Unknown]
  - Vulval disorder [Unknown]
  - Hyperlipidaemia [Unknown]
  - Coagulopathy [Unknown]
  - Hyperglycaemia [Unknown]
  - Irritable bowel syndrome [Unknown]
  - Flank pain [Recovering/Resolving]
  - Fatigue [Unknown]
  - Urinary tract infection [Unknown]
  - Endometrial ablation [Unknown]
  - Arthritis [Unknown]
  - Protein S abnormal [Unknown]
  - Haemangioma of liver [Unknown]

NARRATIVE: CASE EVENT DATE: 201012
